FAERS Safety Report 22191201 (Version 1)
Quarter: 2023Q2

REPORT INFORMATION
  Report Type: Spontaneous
  Country: GB (occurrence: GB)
  Receive Date: 20230410
  Receipt Date: 20230410
  Transmission Date: 20230722
  Serious: Yes (Hospitalization)
  Sender: FDA-Public Use
  Company Number: None

PATIENT

DRUGS (5)
  1. METHOTREXATE [Suspect]
     Active Substance: METHOTREXATE
     Indication: Product used for unknown indication
     Dosage: 20MG/0.4ML INJECTION PRE-FILLED SOLUTION ONCE WEEKLY ON FRIDAY (LAST HAD 30-DEC-2022)
  2. ADALIMUMAB [Concomitant]
     Active Substance: ADALIMUMAB
     Dosage: AMGEVITA, 40MG/0.8ML INJECTION PRE-FILLED TWO WEEKLY (LAST HAD 23-DEC-2022)
  3. CALCIUM CARBONATE\CHOLECALCIFEROL [Concomitant]
     Active Substance: CALCIUM CARBONATE\CHOLECALCIFEROL
     Dosage: TABLET 750MG/200UNIT CAPLET- 2 TAB OM, (GP RECORDS STATE 2TAB BD,
  4. FOLIC ACID [Concomitant]
     Active Substance: FOLIC ACID
     Dosage: 5 MG ONCE A WEEKLY ON MONDAY
  5. MESALAMINE [Concomitant]
     Active Substance: MESALAMINE
     Dosage: PENTASA, 500MG MODIFIED-RELEASE TABLET- 4 TABLETS OM

REACTIONS (1)
  - Lower respiratory tract infection [Recovered/Resolved]
